FAERS Safety Report 4624384-4 (Version None)
Quarter: 2005Q1

REPORT INFORMATION
  Report Type: 
  Country: None (occurrence: None)
  Receive Date: 20050330
  Receipt Date: 20050330
  Transmission Date: 20050727
  Serious: Yes (Other)
  Sender: FDA-Public Use
  Company Number: None

PATIENT
  Age: 45 Year
  Sex: Female
  Weight: 67.1324 kg

DRUGS (2)
  1. ZICAM COLD REMEDY MATRIXX INITIATIVES, INC [Suspect]
     Indication: NASOPHARYNGITIS
     Dosage: ONE SPRAY EVERY 4 HOURS NASAL
     Route: 045
     Dates: start: 20050201, end: 20050206
  2. NASONEX [Suspect]
     Indication: HYPERSENSITIVITY
     Dosage: ONE SPRAY DAILY NASAL
     Route: 045
     Dates: start: 20050225, end: 20050301

REACTIONS (4)
  - DYSGEUSIA [None]
  - PAROSMIA [None]
  - SINUSITIS [None]
  - VIRAL UPPER RESPIRATORY TRACT INFECTION [None]
